FAERS Safety Report 21193547 (Version 2)
Quarter: 2022Q4

REPORT INFORMATION
  Report Type: Report from Study
  Country: US (occurrence: US)
  Receive Date: 20220810
  Receipt Date: 20221018
  Transmission Date: 20230113
  Serious: Yes (Hospitalization)
  Sender: FDA-Public Use
  Company Number: US-BRISTOL-MYERS SQUIBB COMPANY-2022-082378

PATIENT
  Age: 57 Year
  Sex: Male

DRUGS (3)
  1. VIDAZA [Suspect]
     Active Substance: AZACITIDINE
     Indication: Bone marrow disorder
     Dosage: TAKEN FOR ONE WEEK EVERY 28 DAYS
     Route: 065
  2. ENTRESTO [Suspect]
     Active Substance: SACUBITRIL\VALSARTAN
     Indication: Cardiac failure
     Dosage: 24/26MG (0.5 TABLET) TWICE DAILY
     Route: 048
     Dates: start: 20220510
  3. ENTRESTO [Suspect]
     Active Substance: SACUBITRIL\VALSARTAN
     Dosage: 0.5 TABLET TWICE DAILY, AS ORDERED, BECAUSE TAKING ONE TABLET, TWICE DAILY
     Route: 065

REACTIONS (8)
  - Cough [Unknown]
  - Haemoglobin decreased [Unknown]
  - White blood cell count decreased [Unknown]
  - Dizziness [Unknown]
  - Dyspnoea [Unknown]
  - Hypotension [Unknown]
  - Fatigue [Unknown]
  - Heart rate [Unknown]
